APPROVED DRUG PRODUCT: METFORMIN HYDROCHLORIDE
Active Ingredient: METFORMIN HYDROCHLORIDE
Strength: 850MG
Dosage Form/Route: TABLET;ORAL
Application: A075969 | Product #002
Applicant: PHARMOBEDIENT CONSULTING LLC
Approved: Jan 29, 2002 | RLD: No | RS: No | Type: DISCN